FAERS Safety Report 19314510 (Version 1)
Quarter: 2021Q2

REPORT INFORMATION
  Report Type: Spontaneous
  Country: US (occurrence: US)
  Receive Date: 20210527
  Receipt Date: 20210527
  Transmission Date: 20210717
  Serious: Yes (Other)
  Sender: FDA-Public Use
  Company Number: US-BION-009759

PATIENT
  Age: 84 Year
  Sex: Male

DRUGS (7)
  1. AMLODIPINE [Concomitant]
     Active Substance: AMLODIPINE BESYLATE
  2. CANDESARTAN. [Concomitant]
     Active Substance: CANDESARTAN
  3. FLECAINIDE [Concomitant]
     Active Substance: FLECAINIDE
  4. ATORVASTATIN [Concomitant]
     Active Substance: ATORVASTATIN
  5. LEVOTHYROXINE. [Concomitant]
     Active Substance: LEVOTHYROXINE
  6. NAPROXEN SODIUM. [Suspect]
     Active Substance: NAPROXEN SODIUM
     Indication: LUMBAR RADICULOPATHY
     Dosage: 250 MG TWICE DAILY
  7. ASPIRIN. [Concomitant]
     Active Substance: ASPIRIN

REACTIONS (2)
  - Product use in unapproved indication [Not Recovered/Not Resolved]
  - Eosinophilic pneumonia [Recovered/Resolved]
